FAERS Safety Report 6729619-X (Version None)
Quarter: 2010Q2

REPORT INFORMATION
  Report Type: 
  Country: None (occurrence: None)
  Receive Date: 20100518
  Receipt Date: 20100504
  Transmission Date: 20101027
  Serious: Yes (Other)
  Sender: FDA-Public Use
  Company Number: PHHY2010CA27838

PATIENT

DRUGS (6)
  1. ALISKIREN ALI+ [Suspect]
     Dosage: 150 MG, UNK
  2. NORVASC [Concomitant]
     Dosage: UNK
  3. NORVASC [Concomitant]
     Dosage: 1.5 DF, UNK
  4. BETA BLOCKING AGENTS [Concomitant]
     Dosage: UNK
  5. CALCIUM CHANNEL BLOCKERS [Concomitant]
     Dosage: UNK
  6. ACE INHIBITOR NOS [Concomitant]
     Dosage: UNK

REACTIONS (5)
  - ANGINA PECTORIS [None]
  - BLOOD PRESSURE INCREASED [None]
  - HEART RATE DECREASED [None]
  - STENT PLACEMENT [None]
  - VASCULAR GRAFT [None]
